FAERS Safety Report 5497926-7 (Version None)
Quarter: 2007Q4

REPORT INFORMATION
  Report Type: 
  Country: None (occurrence: None)
  Receive Date: 20071025
  Receipt Date: 20071015
  Transmission Date: 20080405
  Serious: Yes (Disabling, Other)
  Sender: FDA-Public Use
  Company Number: AU-PFIZER INC-2007070090

PATIENT
  Sex: Male
  Weight: 89 kg

DRUGS (9)
  1. XANAX [Suspect]
     Indication: ANXIETY
     Route: 048
  2. LIPITOR [Suspect]
  3. PLAVIX [Concomitant]
     Route: 048
  4. CARTIA XT [Concomitant]
  5. TRITACE [Concomitant]
     Route: 048
  6. MULTI-VITAMINS [Concomitant]
  7. NEXIUM [Concomitant]
     Route: 048
  8. TEMAZE [Concomitant]
     Route: 048
  9. PANADOL [Concomitant]
     Route: 048

REACTIONS (7)
  - BLOOD CREATINE PHOSPHOKINASE INCREASED [None]
  - DRUG INTOLERANCE [None]
  - EXERCISE TOLERANCE DECREASED [None]
  - GAIT DISTURBANCE [None]
  - MUSCULAR WEAKNESS [None]
  - MUSCULOSKELETAL DISCOMFORT [None]
  - MYOCARDIAL INFARCTION [None]
